FAERS Safety Report 6218173-7 (Version None)
Quarter: 2009Q2

REPORT INFORMATION
  Report Type: 
  Country: None (occurrence: None)
  Receive Date: 20090608
  Receipt Date: 20090526
  Transmission Date: 20091009
  Serious: Yes (Other)
  Sender: FDA-Public Use
  Company Number: FR-SP-E2009-03928

PATIENT
  Sex: Female

DRUGS (2)
  1. TUBERSOL [Suspect]
     Indication: TUBERCULIN TEST
     Route: 065
  2. TUBERSOL [Suspect]
     Route: 030

REACTIONS (6)
  - CAT SCRATCH DISEASE [None]
  - INCORRECT ROUTE OF DRUG ADMINISTRATION [None]
  - LYMPH NODE TUBERCULOSIS [None]
  - LYMPHADENOPATHY [None]
  - OVERDOSE [None]
  - TUBERCULOSIS [None]
